FAERS Safety Report 15654797 (Version 1)
Quarter: 2018Q4

REPORT INFORMATION
  Report Type: Other
  Country: CZ (occurrence: CZ)
  Receive Date: 20181126
  Receipt Date: 20181126
  Transmission Date: 20190205
  Serious: Yes (Hospitalization)
  Sender: FDA-Public Use
  Company Number: CZ-APOTEX-2018AP021605

PATIENT
  Age: 68 Year
  Sex: Female

DRUGS (8)
  1. DEXAMETHASONE. [Suspect]
     Active Substance: DEXAMETHASONE
     Dosage: 20 MG, QD
     Route: 065
     Dates: start: 20160120, end: 20160120
  2. PARACETAMOL [Suspect]
     Active Substance: ACETAMINOPHEN
     Indication: PREMEDICATION
     Dosage: 1000 MG, QD
     Route: 065
     Dates: start: 20170120
  3. OBINUTUZUMAB. [Suspect]
     Active Substance: OBINUTUZUMAB
     Indication: CHRONIC LYMPHOCYTIC LEUKAEMIA
     Dosage: 100 MG, QD
     Route: 065
     Dates: start: 20160120, end: 20160120
  4. ALLOPURINOL. [Suspect]
     Active Substance: ALLOPURINOL
     Indication: PROPHYLAXIS
     Dosage: 1 DF, QD
     Route: 065
     Dates: start: 20160120, end: 20160120
  5. ALLOPURINOL. [Suspect]
     Active Substance: ALLOPURINOL
     Indication: HYPERURICAEMIA
  6. DEXAMETHASONE. [Suspect]
     Active Substance: DEXAMETHASONE
     Indication: PREMEDICATION
     Dosage: 20 MG, QD
     Route: 065
     Dates: start: 20160120, end: 20160120
  7. CETIRIZIN [Suspect]
     Active Substance: CETIRIZINE HYDROCHLORIDE
     Indication: PREMEDICATION
     Dosage: 10 MG, QD
     Route: 065
     Dates: start: 20160120, end: 20160120
  8. ACETAMINOPHEN. [Suspect]
     Active Substance: ACETAMINOPHEN
     Indication: PREMEDICATION
     Dosage: 1000 MG, QD
     Route: 065
     Dates: start: 20160120, end: 20160120

REACTIONS (7)
  - Pharyngeal oedema [Recovered/Resolved]
  - Neck pain [Recovered/Resolved]
  - Product use in unapproved indication [Unknown]
  - C-reactive protein increased [Recovered/Resolved]
  - Sinusitis [Recovered/Resolved]
  - Erythema [Recovered/Resolved]
  - Off label use [Recovered/Resolved]

NARRATIVE: CASE EVENT DATE: 20160120
